FAERS Safety Report 8261374-7 (Version None)
Quarter: 2012Q2

REPORT INFORMATION
  Report Type: 
  Country: None (occurrence: None)
  Receive Date: 20120405
  Receipt Date: 20120402
  Transmission Date: 20120825
  Serious: Yes (Death)
  Sender: FDA-Public Use
  Company Number: BR-PFIZER INC-2012024568

PATIENT
  Age: 74 Year
  Sex: Male
  Weight: 63 kg

DRUGS (4)
  1. AMLODIPINE BESYLATE [Concomitant]
     Dosage: 1 TABLET, 1X/DAY
  2. PREDNISONE [Concomitant]
     Dosage: ONCE A DAY
  3. SUTENT [Suspect]
     Indication: METASTATIC RENAL CELL CARCINOMA
     Dosage: 50 MG, 1X/DAY
     Route: 048
     Dates: start: 20111129
  4. FUROSEMIDE [Concomitant]

REACTIONS (16)
  - DEATH [None]
  - ORAL DISORDER [None]
  - DEPRESSED MOOD [None]
  - BEDRIDDEN [None]
  - SWELLING FACE [None]
  - RASH MACULAR [None]
  - DECREASED APPETITE [None]
  - HEPATITIS [None]
  - APATHY [None]
  - DEHYDRATION [None]
  - SKIN HAEMORRHAGE [None]
  - DIARRHOEA [None]
  - FATIGUE [None]
  - ABDOMINAL DISTENSION [None]
  - HYPOGEUSIA [None]
  - OEDEMA PERIPHERAL [None]
